FAERS Safety Report 16252804 (Version 1)
Quarter: 2019Q2

REPORT INFORMATION
  Report Type: Spontaneous
  Country: US (occurrence: US)
  Receive Date: 20190326
  Receipt Date: 20190326
  Transmission Date: 20190711
  Serious: Yes (Death, Life-Threatening, Hospitalization)
  Sender: FDA-Public Use
  Company Number: None

PATIENT
  Age: 67 Year
  Sex: Male
  Weight: 76.5 kg

DRUGS (10)
  1. QUETIAPINE. [Concomitant]
     Active Substance: QUETIAPINE
  2. CLARITHROMYCIN. [Concomitant]
     Active Substance: CLARITHROMYCIN
  3. CLARITHROMYCIN. [Suspect]
     Active Substance: CLARITHROMYCIN
     Indication: LUNG INFECTION
     Dosage: ?          QUANTITY:1 TABLET;?
     Route: 048
     Dates: start: 20181017
  4. CLOPIDOGREL [Concomitant]
     Active Substance: CLOPIDOGREL BISULFATE
  5. METOPROLOL ER [Concomitant]
     Active Substance: METOPROLOL SUCCINATE
  6. STIOLTO RESPIMAT [Concomitant]
     Active Substance: OLODATEROL HYDROCHLORIDE\TIOTROPIUM BROMIDE MONOHYDRATE
  7. LAMOTRIGINE. [Concomitant]
     Active Substance: LAMOTRIGINE
  8. ETHAMBUTON [Concomitant]
  9. ETHAMBUTOL [Suspect]
     Active Substance: ETHAMBUTOL HYDROCHLORIDE
     Dosage: ?          QUANTITY:400 DF DOSAGE FORM;?
  10. ATORVASTATIN [Concomitant]
     Active Substance: ATORVASTATIN

REACTIONS (25)
  - Mental impairment [None]
  - Dehydration [None]
  - Cardiac arrest [None]
  - Abdominal pain upper [None]
  - Dyspnoea [None]
  - Infection [None]
  - Hypophagia [None]
  - Exercise tolerance decreased [None]
  - Fatigue [None]
  - Heart rate increased [None]
  - Back pain [None]
  - Nephropathy [None]
  - Chest discomfort [None]
  - Renal pain [None]
  - Liver disorder [None]
  - Impaired driving ability [None]
  - Renal injury [None]
  - Heart rate irregular [None]
  - Fall [None]
  - Feeling abnormal [None]
  - Asthenia [None]
  - Hypotension [None]
  - Malaise [None]
  - Weight increased [None]
  - Blood potassium increased [None]

NARRATIVE: CASE EVENT DATE: 20181116
